FAERS Safety Report 5345099-3 (Version None)
Quarter: 2007Q2

REPORT INFORMATION
  Report Type: 
  Country: None (occurrence: None)
  Receive Date: 20070420
  Receipt Date: 20060528
  Transmission Date: 20071010
  Serious: Yes (Hospitalization)
  Sender: FDA-Public Use
  Company Number: 2006UW10400

PATIENT
  Sex: Male

DRUGS (1)
  1. ZESTORETIC [Suspect]

REACTIONS (1)
  - CONVULSION [None]
